FAERS Safety Report 24832133 (Version 1)
Quarter: 2025Q1

REPORT INFORMATION
  Report Type: Spontaneous
  Country: US (occurrence: US)
  Receive Date: 20250110
  Receipt Date: 20250110
  Transmission Date: 20250409
  Serious: Yes (Life-Threatening, Hospitalization, Disabling, Other)
  Sender: ALEXION PHARMACEUTICALS
  Company Number: US-AstraZeneca-CH-00782413A

PATIENT
  Age: 83 Year
  Weight: 67.12 kg

DRUGS (4)
  1. IMFINZI [Suspect]
     Active Substance: DURVALUMAB
     Indication: Lung neoplasm malignant
  2. IMFINZI [Suspect]
     Active Substance: DURVALUMAB
     Route: 041
  3. IMFINZI [Suspect]
     Active Substance: DURVALUMAB
  4. IMFINZI [Suspect]
     Active Substance: DURVALUMAB
     Route: 041

REACTIONS (8)
  - Myasthenia gravis [Recovering/Resolving]
  - Neck pain [Unknown]
  - Asthenia [Unknown]
  - Fatigue [Unknown]
  - Dysstasia [Unknown]
  - Gait disturbance [Unknown]
  - Diplopia [Unknown]
  - Muscular weakness [Recovering/Resolving]
